FAERS Safety Report 8702839 (Version 2)
Quarter: 2012Q4

REPORT INFORMATION
  Report Type: Report from Study
  Country: US (occurrence: US)
  Receive Date: 20120803
  Receipt Date: 20120914
  Transmission Date: 20130627
  Serious: Yes (Hospitalization)
  Sender: FDA-Public Use
  Company Number: US-JNJFOC-20120715132

PATIENT
  Age: 73 None
  Sex: Male

DRUGS (2)
  1. REMICADE [Suspect]
     Indication: ANKYLOSING SPONDYLITIS
     Route: 042
     Dates: end: 201206
  2. PREDNISONE [Concomitant]
     Indication: ANKYLOSING SPONDYLITIS
     Route: 065

REACTIONS (5)
  - Hospitalisation [Recovered/Resolved]
  - Nerve compression [Not Recovered/Not Resolved]
  - Immune system disorder [Unknown]
  - Nerve injury [Not Recovered/Not Resolved]
  - Adverse drug reaction [Unknown]
